FAERS Safety Report 12909651 (Version 1)
Quarter: 2016Q4

REPORT INFORMATION
  Report Type: Report from Study
  Country: GB (occurrence: GB)
  Receive Date: 20161104
  Receipt Date: 20161104
  Transmission Date: 20170207
  Serious: Yes (Other)
  Sender: FDA-Public Use
  Company Number: GB-ROCHE-1847336

PATIENT

DRUGS (4)
  1. CAPECITABINE. [Suspect]
     Active Substance: CAPECITABINE
     Indication: GASTROOESOPHAGEAL CANCER
     Dosage: DAILY IN A 21-DAY CYCLE
     Route: 065
  2. MATUZUMAB [Suspect]
     Active Substance: MATUZUMAB
     Indication: GASTROOESOPHAGEAL CANCER
     Route: 065
  3. EPIRUBICIN [Suspect]
     Active Substance: EPIRUBICIN
     Indication: GASTROOESOPHAGEAL CANCER
     Route: 065
  4. CISPLATIN. [Suspect]
     Active Substance: CISPLATIN
     Indication: GASTROOESOPHAGEAL CANCER
     Dosage: ON DAY ONE IN 21 DAYS CYCLE
     Route: 065

REACTIONS (21)
  - Anaemia [Unknown]
  - Lethargy [Unknown]
  - Hypokalaemia [Unknown]
  - Nausea [Unknown]
  - Diarrhoea [Unknown]
  - Myocardial infarction [Unknown]
  - Febrile neutropenia [Unknown]
  - Peripheral sensory neuropathy [Unknown]
  - Skin disorder [Unknown]
  - Thrombocytopenia [Unknown]
  - Syncope [Unknown]
  - Dehydration [Unknown]
  - Hyperkalaemia [Unknown]
  - Dyspnoea [Unknown]
  - Vomiting [Unknown]
  - Palmar-plantar erythrodysaesthesia syndrome [Unknown]
  - Pulmonary embolism [Unknown]
  - Infection [Unknown]
  - Neutropenia [Unknown]
  - Fatigue [Unknown]
  - Headache [Unknown]
